FAERS Safety Report 6039057-3 (Version None)
Quarter: 2009Q1

REPORT INFORMATION
  Report Type: 
  Country: None (occurrence: None)
  Receive Date: 20090115
  Receipt Date: 20090107
  Transmission Date: 20090719
  Serious: Yes (Hospitalization)
  Sender: FDA-Public Use
  Company Number: US-ELI_LILLY_AND_COMPANY-US200901000950

PATIENT
  Sex: Male

DRUGS (1)
  1. HUMULIN R [Suspect]

REACTIONS (1)
  - LOCALISED INFECTION [None]
